FAERS Safety Report 8169356-0 (Version None)
Quarter: 2012Q1

REPORT INFORMATION
  Report Type: 
  Country: None (occurrence: None)
  Receive Date: 20120222
  Receipt Date: 20120206
  Transmission Date: 20120608
  Serious: Yes (Hospitalization)
  Sender: FDA-Public Use
  Company Number: SAN_00038_2012

PATIENT
  Age: 61 Year
  Sex: Male

DRUGS (2)
  1. METFORMIN HYDROCHLORIDE [Suspect]
     Indication: TYPE 2 DIABETES MELLITUS
  2. METFORMIN HYDROCHLORIDE [Suspect]
     Indication: TYPE 2 DIABETES MELLITUS
     Dosage: (1700 MG, 1700 MG)

REACTIONS (9)
  - CHOLURIA [None]
  - ACCIDENTAL EXPOSURE [None]
  - JAUNDICE [None]
  - MALAISE [None]
  - NAUSEA [None]
  - HEPATOTOXICITY [None]
  - CHOLESTASIS [None]
  - ABDOMINAL DISCOMFORT [None]
  - DEFICIENCY OF BILE SECRETION [None]
